FAERS Safety Report 14126517 (Version 2)
Quarter: 2017Q4

REPORT INFORMATION
  Report Type: Report from Study
  Country: US (occurrence: US)
  Receive Date: 20171025
  Receipt Date: 20171030
  Transmission Date: 20180321
  Serious: Yes (Death, Hospitalization)
  Sender: FDA-Public Use
  Company Number: US-BIOGEN-2017BI00473346

PATIENT
  Sex: Female

DRUGS (3)
  1. ZINBRYTA [Suspect]
     Active Substance: DACLIZUMAB
     Route: 065
     Dates: start: 201701, end: 201704
  2. ZINBRYTA [Suspect]
     Active Substance: DACLIZUMAB
     Indication: MULTIPLE SCLEROSIS
     Route: 058
  3. ZINBRYTA [Suspect]
     Active Substance: DACLIZUMAB
     Route: 065
     Dates: start: 20170214, end: 20170502

REACTIONS (13)
  - Drug ineffective [Recovered/Resolved]
  - Malaise [Unknown]
  - Decreased appetite [Unknown]
  - Cystitis [Unknown]
  - Dehydration [Unknown]
  - Weight decreased [Unknown]
  - Hallucination [Unknown]
  - Confusional state [Unknown]
  - Appetite disorder [Unknown]
  - Multiple sclerosis [Fatal]
  - Renal disorder [Unknown]
  - Gait disturbance [Unknown]
  - Muscle spasms [Unknown]

NARRATIVE: CASE EVENT DATE: 2017
